FAERS Safety Report 23816623 (Version 1)
Quarter: 2024Q2

REPORT INFORMATION
  Report Type: Spontaneous
  Country: CN (occurrence: CN)
  Receive Date: 20240503
  Receipt Date: 20240503
  Transmission Date: 20240716
  Serious: Yes (Death, Other)
  Sender: FDA-Public Use
  Company Number: CN-STRIDES ARCOLAB LIMITED-2024SP005202

PATIENT
  Age: 52 Year
  Sex: Female

DRUGS (40)
  1. LETROZOLE [Suspect]
     Active Substance: LETROZOLE
     Indication: Invasive ductal breast carcinoma
     Dosage: UNK
     Route: 065
  2. LETROZOLE [Suspect]
     Active Substance: LETROZOLE
     Indication: Human epidermal growth factor receptor positive
  3. ANASTROZOLE [Suspect]
     Active Substance: ANASTROZOLE
     Indication: Invasive ductal breast carcinoma
     Dosage: UNK
     Route: 065
  4. ANASTROZOLE [Suspect]
     Active Substance: ANASTROZOLE
     Indication: Human epidermal growth factor receptor positive
  5. CAPECITABINE [Suspect]
     Active Substance: CAPECITABINE
     Indication: Invasive ductal breast carcinoma
     Dosage: UNK
     Route: 065
  6. CAPECITABINE [Suspect]
     Active Substance: CAPECITABINE
     Indication: Human epidermal growth factor receptor positive
  7. AFATINIB DIMALEATE [Suspect]
     Active Substance: AFATINIB DIMALEATE
     Indication: Invasive ductal breast carcinoma
     Dosage: UNK
     Route: 065
  8. AFATINIB DIMALEATE [Suspect]
     Active Substance: AFATINIB DIMALEATE
     Indication: Human epidermal growth factor receptor positive
  9. CISPLATIN [Suspect]
     Active Substance: CISPLATIN
     Indication: Invasive ductal breast carcinoma
     Dosage: UNK
     Route: 065
  10. CISPLATIN [Suspect]
     Active Substance: CISPLATIN
     Indication: Human epidermal growth factor receptor positive
  11. CYCLOPHOSPHAMIDE [Suspect]
     Active Substance: CYCLOPHOSPHAMIDE
     Indication: Invasive ductal breast carcinoma
     Dosage: UNK
     Route: 065
  12. CYCLOPHOSPHAMIDE [Suspect]
     Active Substance: CYCLOPHOSPHAMIDE
     Indication: Human epidermal growth factor receptor positive
  13. EPOTHILONE C [Suspect]
     Active Substance: EPOTHILONE C
     Indication: Invasive ductal breast carcinoma
     Dosage: UNK
     Route: 065
  14. EPOTHILONE C [Suspect]
     Active Substance: EPOTHILONE C
     Indication: Human epidermal growth factor receptor positive
  15. DOCETAXEL [Suspect]
     Active Substance: DOCETAXEL\DOCETAXEL ANHYDROUS
     Indication: Invasive ductal breast carcinoma
     Dosage: UNK
     Route: 065
  16. DOCETAXEL [Suspect]
     Active Substance: DOCETAXEL\DOCETAXEL ANHYDROUS
     Indication: Human epidermal growth factor receptor positive
  17. EVEROLIMUS [Suspect]
     Active Substance: EVEROLIMUS
     Indication: Invasive ductal breast carcinoma
     Dosage: UNK
     Route: 065
  18. EVEROLIMUS [Suspect]
     Active Substance: EVEROLIMUS
     Indication: Human epidermal growth factor receptor positive
  19. EXEMESTANE [Suspect]
     Active Substance: EXEMESTANE
     Indication: Invasive ductal breast carcinoma
     Dosage: UNK
     Route: 065
  20. EXEMESTANE [Suspect]
     Active Substance: EXEMESTANE
     Indication: Human epidermal growth factor receptor positive
  21. FULVESTRANT [Suspect]
     Active Substance: FULVESTRANT
     Indication: Invasive ductal breast carcinoma
     Dosage: UNK
     Route: 065
  22. FULVESTRANT [Suspect]
     Active Substance: FULVESTRANT
     Indication: Human epidermal growth factor receptor positive
  23. GEMCITABINE [Suspect]
     Active Substance: GEMCITABINE
     Indication: Invasive ductal breast carcinoma
     Dosage: UNK
     Route: 065
  24. GEMCITABINE [Suspect]
     Active Substance: GEMCITABINE
     Indication: Human epidermal growth factor receptor positive
  25. LAPATINIB [Suspect]
     Active Substance: LAPATINIB
     Indication: Invasive ductal breast carcinoma
     Dosage: UNK
     Route: 065
  26. LAPATINIB [Suspect]
     Active Substance: LAPATINIB
     Indication: Human epidermal growth factor receptor positive
  27. NIVOLUMAB [Suspect]
     Active Substance: NIVOLUMAB
     Indication: Invasive ductal breast carcinoma
     Dosage: UNK
     Route: 065
  28. NIVOLUMAB [Suspect]
     Active Substance: NIVOLUMAB
     Indication: Human epidermal growth factor receptor positive
  29. TAXOL [Suspect]
     Active Substance: PACLITAXEL
     Indication: Invasive ductal breast carcinoma
     Dosage: UNK
     Route: 065
  30. TAXOL [Suspect]
     Active Substance: PACLITAXEL
     Indication: Human epidermal growth factor receptor positive
  31. PIRARUBICIN [Suspect]
     Active Substance: PIRARUBICIN
     Indication: Invasive ductal breast carcinoma
     Dosage: UNK
     Route: 065
  32. PIRARUBICIN [Suspect]
     Active Substance: PIRARUBICIN
     Indication: Human epidermal growth factor receptor positive
  33. TAMOXIFEN [Suspect]
     Active Substance: TAMOXIFEN
     Indication: Invasive ductal breast carcinoma
     Dosage: UNK
     Route: 065
  34. TAMOXIFEN [Suspect]
     Active Substance: TAMOXIFEN
     Indication: Human epidermal growth factor receptor positive
  35. HERCEPTIN [Suspect]
     Active Substance: TRASTUZUMAB
     Indication: Invasive ductal breast carcinoma
     Dosage: UNK
     Route: 065
  36. HERCEPTIN [Suspect]
     Active Substance: TRASTUZUMAB
     Indication: Human epidermal growth factor receptor positive
  37. VINORELBINE [Suspect]
     Active Substance: VINORELBINE TARTRATE
     Indication: Invasive ductal breast carcinoma
     Dosage: UNK
     Route: 065
  38. VINORELBINE [Suspect]
     Active Substance: VINORELBINE TARTRATE
     Indication: Human epidermal growth factor receptor positive
  39. APATINIB [Suspect]
     Active Substance: APATINIB
     Indication: Invasive ductal breast carcinoma
     Dosage: 250 MILLIGRAM, QD
     Route: 065
     Dates: start: 20170517
  40. APATINIB [Suspect]
     Active Substance: APATINIB
     Indication: Human epidermal growth factor receptor positive
     Dosage: UNK; RE-INITIATED
     Route: 065

REACTIONS (3)
  - Death [Fatal]
  - Malignant neoplasm progression [Unknown]
  - Drug ineffective [Unknown]
